FAERS Safety Report 23354739 (Version 1)
Quarter: 2024Q1

REPORT INFORMATION
  Report Type: Spontaneous
  Country: US (occurrence: US)
  Receive Date: 20240101
  Receipt Date: 20240101
  Transmission Date: 20240409
  Serious: No
  Sender: FDA-Public Use
  Company Number: US-SA-SAC20231222000234

PATIENT
  Age: 35 Year
  Sex: Female

DRUGS (1)
  1. DUPIXENT [Suspect]
     Active Substance: DUPILUMAB
     Indication: Asthma
     Dosage: UNKNOWN
     Route: 058
     Dates: start: 201812

REACTIONS (3)
  - Sinus disorder [Recovering/Resolving]
  - Cough [Not Recovered/Not Resolved]
  - Therapeutic response unexpected [Recovering/Resolving]
